FAERS Safety Report 10997103 (Version 1)
Quarter: 2015Q2

REPORT INFORMATION
  Report Type: Spontaneous
  Country: US (occurrence: None)
  Receive Date: 20150407
  Receipt Date: 20150407
  Transmission Date: 20150821
  Serious: No
  Sender: FDA-Public Use
  Company Number: None

PATIENT
  Age: 47 Year
  Sex: Male

DRUGS (2)
  1. MYCOPHENOLATE 250MG ROXANE [Suspect]
     Active Substance: MYCOPHENOLATE MOFETIL
     Indication: RENAL TRANSPLANT
     Dosage: 6 CAPSULE
     Route: 048
     Dates: start: 20140625
  2. TACROLIMUS 1MG DR. REDDY^S LABORATORIES, INC [Suspect]
     Active Substance: TACROLIMUS
     Indication: RENAL TRANSPLANT
     Route: 048
     Dates: start: 20140625

REACTIONS (3)
  - Agitation [None]
  - Emotional disorder [None]
  - Libido decreased [None]

NARRATIVE: CASE EVENT DATE: 20150202
